FAERS Safety Report 14113567 (Version 1)
Quarter: 2017Q4

REPORT INFORMATION
  Report Type: Spontaneous
  Country: US (occurrence: US)
  Receive Date: 20171022
  Receipt Date: 20171022
  Transmission Date: 20180321
  Serious: Yes (Hospitalization)
  Sender: FDA-Public Use
  Company Number: None

PATIENT
  Age: 58 Year
  Weight: 76.5 kg

DRUGS (1)
  1. CLONIDINE TRANSDERMAL SYSTEM [Suspect]
     Active Substance: CLONIDINE
     Indication: SMOKING CESSATION THERAPY
     Dosage: QUANTITY:1 PATCH(ES);?
     Dates: start: 20161118, end: 20161122

REACTIONS (2)
  - Insomnia [None]
  - Delusion [None]

NARRATIVE: CASE EVENT DATE: 20161122
